FAERS Safety Report 11457499 (Version 1)
Quarter: 2015Q3

REPORT INFORMATION
  Report Type: Spontaneous
  Country: IN (occurrence: None)
  Receive Date: 20150902
  Receipt Date: 20150902
  Transmission Date: 20151125
  Serious: Yes (Death)
  Sender: FDA-Public Use
  Company Number: NSR_02221_2015

PATIENT
  Age: 14 Year
  Sex: Female
  Weight: 25 kg

DRUGS (4)
  1. FENTANYL. [Concomitant]
     Active Substance: FENTANYL
  2. SUCCINYLCHOLINE (SUCCINYLCHOLINE) (NOT SPECIFIED) [Suspect]
     Active Substance: SUCCINYLCHOLINE
     Indication: ANAESTHESIA
     Route: 042
  3. THIOPENTONE SODIUM [Concomitant]
     Active Substance: THIOPENTAL SODIUM
  4. PROPRANOLOL [Suspect]
     Active Substance: PROPRANOLOL\PROPRANOLOL HYDROCHLORIDE
     Indication: PORTAL VEIN OCCLUSION
     Route: 048

REACTIONS (6)
  - Temporomandibular joint syndrome [None]
  - Hyperkalaemia [None]
  - Cardiac arrest [None]
  - Joint stiffness [None]
  - Bradycardia [None]
  - Drug interaction [None]
